FAERS Safety Report 4893265-3 (Version None)
Quarter: 2006Q1

REPORT INFORMATION
  Report Type: 
  Country: None (occurrence: None)
  Receive Date: 20060124
  Receipt Date: 20060110
  Transmission Date: 20060701
  Serious: Yes (Other)
  Sender: FDA-Public Use
  Company Number: SUSI-2006-00040

PATIENT
  Age: 45 Year
  Sex: Female
  Weight: 80.7 kg

DRUGS (4)
  1. EQUETRO [Suspect]
     Indication: BIPOLAR DISORDER
     Dosage: 200 MG, 1X/DAY:QD
     Dates: start: 20051201, end: 20060107
  2. LEXAPRO [Concomitant]
  3. LAMICTAL [Concomitant]
  4. AMBIEN [Concomitant]

REACTIONS (9)
  - DYSPEPSIA [None]
  - FEELING ABNORMAL [None]
  - HEADACHE [None]
  - LIMB DISCOMFORT [None]
  - MUSCLE SPASMS [None]
  - PAIN IN EXTREMITY [None]
  - RASH [None]
  - RECTAL HAEMORRHAGE [None]
  - VAGINAL HAEMORRHAGE [None]
